FAERS Safety Report 7565177-8 (Version None)
Quarter: 2011Q2

REPORT INFORMATION
  Report Type: 
  Country: None (occurrence: None)
  Receive Date: 20110622
  Receipt Date: 20110510
  Transmission Date: 20111010
  Serious: Yes (Other)
  Sender: FDA-Public Use
  Company Number: PHHY2010AR89554

PATIENT
  Sex: Female

DRUGS (6)
  1. EXFORGE [Suspect]
     Indication: HYPERTENSION
  2. ASPIRIN [Concomitant]
  3. ATENOLOL [Concomitant]
  4. OMEPRAZOLE [Concomitant]
  5. EXFORGE [Suspect]
     Indication: BLOOD PRESSURE
     Dosage: 160 MG VALS AND 5 MG AMLO
     Route: 048
  6. METICORTEN [Concomitant]

REACTIONS (3)
  - URTICARIA [None]
  - SKIN DISORDER [None]
  - PSORIASIS [None]
